FAERS Safety Report 7129309-8 (Version None)
Quarter: 2010Q4

REPORT INFORMATION
  Report Type: 
  Country: None (occurrence: None)
  Receive Date: 20101130
  Receipt Date: 20101122
  Transmission Date: 20110411
  Serious: Yes (Other)
  Sender: FDA-Public Use
  Company Number: US-PFIZER INC-2010155197

PATIENT
  Sex: Male
  Weight: 72 kg

DRUGS (15)
  1. ZOLOFT [Suspect]
     Indication: ANXIETY
     Dosage: 200 MG, DAILY
     Route: 048
     Dates: start: 20040101
  2. ZOLOFT [Suspect]
     Indication: STRESS
  3. ZOLOFT [Suspect]
     Indication: HYPERTENSION
  4. SERTRALINE HYDROCHLORIDE [Suspect]
     Indication: ANXIETY
     Dosage: UNK
  5. SERTRALINE HYDROCHLORIDE [Suspect]
     Indication: STRESS
  6. SERTRALINE HYDROCHLORIDE [Suspect]
     Indication: HYPERTENSION
  7. AMPYRA [Concomitant]
     Dosage: 20 MG, DAILY
  8. CELEBREX [Concomitant]
     Dosage: 200 MG, 2X/DAY
  9. PROTONIX [Concomitant]
     Dosage: 40 MG, 2X/DAY
  10. TIZANIDINE [Concomitant]
     Dosage: 4 MG, 4X/DAY
  11. ARMODAFINIL [Concomitant]
     Dosage: 250 MG, DAILY
  12. VALIUM [Concomitant]
     Dosage: 40 MG, DAILY
  13. ACETYLSALICYLIC ACID [Concomitant]
     Dosage: 81 MG, DAILY
  14. ZYRTEC [Concomitant]
     Dosage: 25 MG THREE TO FOUR TIMES PER DAY
  15. COPAXONE [Concomitant]
     Dosage: 20 MG, UNK

REACTIONS (4)
  - ANGER [None]
  - DEPRESSED MOOD [None]
  - DRUG INEFFECTIVE [None]
  - FRUSTRATION [None]
